FAERS Safety Report 24999392 (Version 2)
Quarter: 2025Q3

REPORT INFORMATION
  Report Type: Spontaneous
  Country: US (occurrence: US)
  Receive Date: 20250222
  Receipt Date: 20250916
  Transmission Date: 20251021
  Serious: No
  Sender: SANOFI AVENTIS
  Company Number: US-SA-2025SA042535

PATIENT
  Age: 65 Year
  Sex: Female

DRUGS (4)
  1. DUPIXENT [Suspect]
     Active Substance: DUPILUMAB
     Indication: Asthma
     Dosage: 300 MG, QOW
     Route: 058
     Dates: start: 202312
  2. DUPIXENT [Suspect]
     Active Substance: DUPILUMAB
     Indication: Dermatitis atopic
  3. Optase Dry Eye [Concomitant]
     Indication: Dry eye
  4. CROMOLYN [Concomitant]
     Active Substance: CROMOLYN
     Indication: Dry eye

REACTIONS (5)
  - Miliaria [Unknown]
  - Fibromyalgia [Unknown]
  - Dermatitis atopic [Unknown]
  - Asthma [Unknown]
  - Rebound effect [Unknown]

NARRATIVE: CASE EVENT DATE: 20250101
